FAERS Safety Report 25422300 (Version 1)
Quarter: 2025Q2

REPORT INFORMATION
  Report Type: Spontaneous
  Country: US (occurrence: None)
  Receive Date: 20250610
  Receipt Date: 20250610
  Transmission Date: 20250717
  Serious: Yes (Hospitalization)
  Sender: FDA-CTU
  Company Number: None

PATIENT
  Age: 67 Year
  Sex: Male

DRUGS (1)
  1. ABIRATERONE ACETATE [Suspect]
     Active Substance: ABIRATERONE ACETATE
     Indication: Prostate cancer
     Dosage: FREQUENCY : DAILY;?

REACTIONS (8)
  - Asthenia [None]
  - Abdominal pain upper [None]
  - Back pain [None]
  - Dry throat [None]
  - Tinnitus [None]
  - Blood pressure increased [None]
  - Fall [None]
  - Pain [None]
